FAERS Safety Report 8345165-4 (Version None)
Quarter: 2012Q2

REPORT INFORMATION
  Report Type: 
  Country: None (occurrence: None)
  Receive Date: 20120508
  Receipt Date: 20120504
  Transmission Date: 20120825
  Serious: Yes (Death, Hospitalization)
  Sender: FDA-Public Use
  Company Number: PHHY2012DE038266

PATIENT
  Age: 52 Year
  Sex: Female

DRUGS (1)
  1. VALACICLOVIR [Suspect]

REACTIONS (2)
  - TOXIC EPIDERMAL NECROLYSIS [None]
  - STEVENS-JOHNSON SYNDROME [None]
